FAERS Safety Report 22292498 (Version 1)
Quarter: 2023Q2

REPORT INFORMATION
  Report Type: Report from Study
  Country: US (occurrence: US)
  Receive Date: 20230508
  Receipt Date: 20230508
  Transmission Date: 20230722
  Serious: Yes (Other)
  Sender: FDA-Public Use
  Company Number: US-ABBVIE-4751479

PATIENT
  Sex: Female

DRUGS (1)
  1. HUMIRA [Suspect]
     Active Substance: ADALIMUMAB
     Indication: Rheumatoid arthritis
     Route: 058
     Dates: start: 20220914, end: 20230415

REACTIONS (4)
  - Mental disorder [Recovering/Resolving]
  - Injury [Unknown]
  - Suicidal ideation [Unknown]
  - Reproductive tract disorder [Not Recovered/Not Resolved]
